FAERS Safety Report 13634076 (Version 1)
Quarter: 2017Q2

REPORT INFORMATION
  Report Type: Spontaneous
  Country: US (occurrence: US)
  Receive Date: 20170531
  Receipt Date: 20170531
  Transmission Date: 20170830
  Serious: No
  Sender: FDA-Public Use
  Company Number: US-ASTELLAS-1602870

PATIENT
  Age: 55 Year
  Sex: Female

DRUGS (1)
  1. TARCEVA [Suspect]
     Active Substance: ERLOTINIB HYDROCHLORIDE
     Indication: LUNG NEOPLASM MALIGNANT
     Route: 048

REACTIONS (11)
  - Rash [Unknown]
  - Dry skin [Unknown]
  - Neuropathy peripheral [Unknown]
  - Dyspnoea [Unknown]
  - Onychoclasis [Unknown]
  - Fatigue [Unknown]
  - Hair texture abnormal [Unknown]
  - Chest discomfort [Unknown]
  - Trichorrhexis [Unknown]
  - Diarrhoea [Unknown]
  - Arthralgia [Unknown]
